FAERS Safety Report 10185129 (Version 2)
Quarter: 2014Q2

REPORT INFORMATION
  Report Type: Report from Study
  Country: CA (occurrence: CA)
  Receive Date: 20140521
  Receipt Date: 20140521
  Transmission Date: 20141212
  Serious: Yes (Other)
  Sender: FDA-Public Use
  Company Number: CA-JNJFOC-20130814313

PATIENT
  Age: 16 Year
  Sex: Female
  Weight: 67.7 kg

DRUGS (1)
  1. REMICADE [Suspect]
     Indication: CROHN^S DISEASE
     Dosage: APPROXIMATE TOTAL NUMBER OF INFUSION RECEIVED WERE 17.
     Route: 042
     Dates: start: 20120310

REACTIONS (4)
  - Exposure during pregnancy [Recovered/Resolved]
  - Abortion induced [Recovered/Resolved]
  - Wound infection [Recovered/Resolved]
  - Crohn^s disease [Unknown]
